FAERS Safety Report 6430024-4 (Version None)
Quarter: 2009Q4

REPORT INFORMATION
  Report Type: 
  Country: None (occurrence: None)
  Receive Date: 20091104
  Receipt Date: 20091104
  Transmission Date: 20100525
  Serious: Yes (Other)
  Sender: FDA-Public Use
  Company Number: None

PATIENT
  Age: 49 Year
  Sex: Female
  Weight: 61.2356 kg

DRUGS (2)
  1. BONIVA [Suspect]
     Indication: OSTEOPOROSIS
     Dosage: 1 PILL 1 PER MONTH PO  1 MONTHE DOSE IN 1 PILL
     Route: 048
     Dates: start: 20091014, end: 20091014
  2. BONIVA [Suspect]

REACTIONS (9)
  - COUGH [None]
  - DIZZINESS [None]
  - DYSPNOEA [None]
  - FATIGUE [None]
  - FEAR [None]
  - FEELING ABNORMAL [None]
  - HEART RATE IRREGULAR [None]
  - INSOMNIA [None]
  - VENTRICULAR EXTRASYSTOLES [None]
